FAERS Safety Report 6436889-4 (Version None)
Quarter: 2009Q4

REPORT INFORMATION
  Report Type: 
  Country: None (occurrence: None)
  Receive Date: 20091109
  Receipt Date: 20091105
  Transmission Date: 20100525
  Serious: Yes (Other)
  Sender: FDA-Public Use
  Company Number: A0814964A

PATIENT
  Age: 35 Year
  Sex: Female

DRUGS (1)
  1. DIPHENHYDRAMINE HCL [Suspect]
     Indication: INSOMNIA
     Dosage: ORAL
     Route: 048
     Dates: start: 20091101, end: 20091101

REACTIONS (6)
  - APRAXIA [None]
  - HEART RATE INCREASED [None]
  - INITIAL INSOMNIA [None]
  - MYOCARDIAL INFARCTION [None]
  - SOMNOLENCE [None]
  - VISION BLURRED [None]
